FAERS Safety Report 8088808-5 (Version None)
Quarter: 2012Q1

REPORT INFORMATION
  Report Type: 
  Country: None (occurrence: None)
  Receive Date: 20120128
  Receipt Date: 20110430
  Transmission Date: 20120608
  Serious: No
  Sender: FDA-Public Use
  Company Number: US-ABBOTT-11P-163-0722754-00

PATIENT
  Age: 52 Year
  Sex: Female

DRUGS (10)
  1. TRAMADOL HCL [Concomitant]
     Indication: PAIN
  2. METHOTREXATE [Concomitant]
     Indication: RHEUMATOID ARTHRITIS
  3. CRESTOR [Concomitant]
     Indication: BLOOD CHOLESTEROL INCREASED
     Dosage: 10 MG DAILY
  4. MICARDIS [Concomitant]
     Indication: HYPERTENSION
     Dosage: 20 MG DAILY
  5. HUMIRA [Suspect]
     Indication: RHEUMATOID ARTHRITIS
     Dates: start: 20101203, end: 20110310
  6. NEXIUM [Concomitant]
     Indication: GASTROOESOPHAGEAL REFLUX DISEASE
     Dosage: 40 MG DAILY
  7. FOLIC ACID [Concomitant]
     Indication: SUPPLEMENTATION THERAPY
     Dosage: 1 MG DAILY
  8. FORTEO [Concomitant]
     Indication: OSTEOPOROSIS
     Dosage: 20 MCG DAILY
  9. OSCAL D [Concomitant]
     Indication: MINERAL SUPPLEMENTATION
     Dosage: 500 MG DAILY
  10. PREDNISONE TAB [Concomitant]
     Indication: RHEUMATOID ARTHRITIS
     Dosage: 7.5 MG DAILY

REACTIONS (3)
  - BLOOD CHOLESTEROL INCREASED [None]
  - HYPERTENSION [None]
  - DRUG INEFFECTIVE [None]
